FAERS Safety Report 4577416-6 (Version None)
Quarter: 2005Q1

REPORT INFORMATION
  Report Type: 
  Country: None (occurrence: None)
  Receive Date: 20050208
  Receipt Date: 20050126
  Transmission Date: 20050727
  Serious: Yes (Life-Threatening, Other)
  Sender: FDA-Public Use
  Company Number: HQWYE905427JAN05

PATIENT
  Age: 72 Year
  Sex: Male

DRUGS (4)
  1. AMIODARONE HCL [Suspect]
     Indication: ATRIAL FIBRILLATION
     Dosage: 600 MG, 3 X PER 1 WK, ORAL
     Route: 048
     Dates: start: 20031101, end: 20041130
  2. AMIODARONE HCL [Suspect]
     Indication: ATRIAL FLUTTER
     Dosage: 600 MG, 3 X PER 1 WK, ORAL
     Route: 048
     Dates: start: 20031101, end: 20041130
  3. CASODEX [Suspect]
     Indication: PROSTATE CANCER
     Dosage: 50 MG 2 X PER 1 DAY, ORAL
     Route: 048
     Dates: start: 20030101, end: 20041130
  4. TROMALYT (ACETYLSALICYLIC ACID) [Concomitant]

REACTIONS (6)
  - BRADYARRHYTHMIA [None]
  - BRADYCARDIA [None]
  - CARDIO-RESPIRATORY ARREST [None]
  - DRUG INTERACTION [None]
  - ELECTROCARDIOGRAM QT PROLONGED [None]
  - VENTRICULAR FIBRILLATION [None]
